FAERS Safety Report 7035427-5 (Version None)
Quarter: 2010Q4

REPORT INFORMATION
  Report Type: 
  Country: None (occurrence: None)
  Receive Date: 20101008
  Receipt Date: 20101001
  Transmission Date: 20110411
  Serious: Yes (Other)
  Sender: FDA-Public Use
  Company Number: US-PFIZER INC-2010111819

PATIENT
  Sex: Male
  Weight: 109.75 kg

DRUGS (12)
  1. CHANTIX [Suspect]
     Indication: SMOKING CESSATION THERAPY
     Dosage: 0.5 MG, 1X/DAY
     Route: 048
     Dates: start: 20100823, end: 20100101
  2. CHANTIX [Suspect]
     Dosage: UNK
     Route: 048
     Dates: start: 20100101, end: 20100902
  3. GEODON [Concomitant]
     Indication: PARANOIA
     Dosage: 80 MG, 2X/DAY
     Route: 048
     Dates: start: 19900101
  4. GEODON [Concomitant]
     Indication: SCHIZOPHRENIA
  5. FLUOXETINE HYDROCHLORIDE [Concomitant]
     Indication: DEPRESSION
     Dosage: 20 MG, 4X/DAY
     Dates: start: 20010101
  6. DESVENLAFAXINE [Concomitant]
     Indication: DEPRESSION
     Dosage: 37.5 MG, 2X/DAY
  7. ISOSORBIDE MONONITRATE [Concomitant]
     Indication: CARDIAC DISORDER
     Dosage: 60 MG, 1X/DAY
     Dates: start: 20010101
  8. NITROGLYCERIN [Concomitant]
     Indication: CARDIAC DISORDER
     Dosage: 0.4 MG, 3X/DAY
  9. LANOXIN [Concomitant]
     Indication: CARDIAC DISORDER
     Dosage: 0.25 MG, 1X/DAY
     Dates: start: 20010101
  10. FUROSEMIDE [Concomitant]
     Indication: CARDIAC DISORDER
     Dosage: 40 MG, 2 TABLETS DAILY
     Route: 048
     Dates: start: 20010101
  11. LANTUS [Concomitant]
     Indication: TYPE 2 DIABETES MELLITUS
     Dosage: 30 IU, UNK
  12. METFORMIN [Concomitant]
     Indication: TYPE 2 DIABETES MELLITUS
     Dosage: 500 MG, 2X/DAY

REACTIONS (6)
  - AGITATION [None]
  - CONDITION AGGRAVATED [None]
  - DEPRESSION [None]
  - DYSPHONIA [None]
  - PARANOIA [None]
  - SCHIZOPHRENIA [None]
